FAERS Safety Report 21999332 (Version 2)
Quarter: 2023Q2

REPORT INFORMATION
  Report Type: Spontaneous
  Country: US (occurrence: US)
  Receive Date: 20230216
  Receipt Date: 20230621
  Transmission Date: 20230722
  Serious: No
  Sender: FDA-Public Use
  Company Number: US-SA-SAC20230214000680

PATIENT
  Age: 48 Year
  Sex: Female

DRUGS (18)
  1. DUPIXENT [Suspect]
     Active Substance: DUPILUMAB
     Indication: Dermatitis atopic
     Dosage: 300 MG, QOW
     Route: 058
     Dates: start: 20230210
  2. BENZONATATE [Concomitant]
     Active Substance: BENZONATATE
  3. CLOBETASOL [Concomitant]
     Active Substance: CLOBETASOL
  4. EPINEPHRINE [Concomitant]
     Active Substance: EPINEPHRINE
  5. EUCRISA [Concomitant]
     Active Substance: CRISABOROLE
  6. HALOBETASOL PROPIONATE [Concomitant]
     Active Substance: HALOBETASOL PROPIONATE
  7. LOMAIRA [Concomitant]
     Active Substance: PHENTERMINE HYDROCHLORIDE
  8. NIACIN [Concomitant]
     Active Substance: NIACIN
  9. PREDNISONE [Concomitant]
     Active Substance: PREDNISONE
  10. TACROLIMUS [Concomitant]
     Active Substance: TACROLIMUS
  11. TIROSINT [Concomitant]
     Active Substance: LEVOTHYROXINE SODIUM
  12. MAGNESIUM GLYCINATE [Concomitant]
     Active Substance: MAGNESIUM GLYCINATE
  13. METHYLPREDNISOLONE [Concomitant]
     Active Substance: METHYLPREDNISOLONE
  14. METOPROLOL SUCCINATE [Concomitant]
     Active Substance: METOPROLOL SUCCINATE
  15. TACROLIMUS [Concomitant]
     Active Substance: TACROLIMUS
  16. PREDNISONE [Concomitant]
     Active Substance: PREDNISONE
  17. BIFIDOBACTERIUM ANIMALIS LACTIS [Concomitant]
     Active Substance: BIFIDOBACTERIUM ANIMALIS LACTIS
  18. MAGNESIUM POWDER [MAGNESIUM ASPARTATE;MAGNESIUM CHELATE;MAGNESIUM CITR [Concomitant]

REACTIONS (4)
  - COVID-19 [Not Recovered/Not Resolved]
  - Sleep disorder [Not Recovered/Not Resolved]
  - Infection [Unknown]
  - Product dose omission in error [Unknown]

NARRATIVE: CASE EVENT DATE: 20230101
